FAERS Safety Report 7603048-9 (Version None)
Quarter: 2011Q3

REPORT INFORMATION
  Report Type: 
  Country: None (occurrence: None)
  Receive Date: 20110712
  Receipt Date: 20110712
  Transmission Date: 20111222
  Serious: No
  Sender: FDA-Public Use
  Company Number: None

PATIENT
  Age: 82 Year
  Sex: Female
  Weight: 65.77 kg

DRUGS (1)
  1. CLARITIN [Suspect]
     Indication: SINUS CONGESTION
     Dosage: 1 PILL
     Route: 048
     Dates: start: 20110707, end: 20110709

REACTIONS (2)
  - TREMOR [None]
  - NERVOUSNESS [None]
